FAERS Safety Report 15093375 (Version 2)
Quarter: 2018Q3

REPORT INFORMATION
  Report Type: Spontaneous
  Country: US (occurrence: US)
  Receive Date: 20180629
  Receipt Date: 20180712
  Transmission Date: 20181010
  Serious: Yes (Other)
  Sender: FDA-Public Use
  Company Number: US-MALLINCKRODT-T201802712

PATIENT
  Age: 32 Year
  Sex: Male

DRUGS (1)
  1. ACETAMINOPHEN AND CODEINE [Suspect]
     Active Substance: ACETAMINOPHEN\CODEINE PHOSPHATE
     Indication: PROCEDURAL PAIN
     Dosage: 300/30?MG TABLETS, EVERY 6 HOURS
     Route: 048

REACTIONS (1)
  - Acute febrile neutrophilic dermatosis [Unknown]
